FAERS Safety Report 8086686 (Version 2)
Quarter: 2013Q2

REPORT INFORMATION
  Report Type: Spontaneous
  Country: US (occurrence: US)
  Receive Date: 20110811
  Receipt Date: 20130624
  Transmission Date: 20140414
  Serious: Yes (Hospitalization)
  Sender: FDA-Public Use
  Company Number: US-GLAXOSMITHKLINE-B0738609A

PATIENT
  Age: 51 Year
  Sex: Female

DRUGS (13)
  1. AVANDIA [Suspect]
     Indication: DIABETES MELLITUS
     Dosage: 4MG PER DAY
     Route: 048
     Dates: start: 20010404, end: 201009
  2. ASPIRIN [Concomitant]
  3. METOPROLOL [Concomitant]
  4. LISINOPRIL [Concomitant]
  5. ZOCOR [Concomitant]
  6. NITROGLYCERIN [Concomitant]
  7. ANTIVERT [Concomitant]
  8. BACLOFEN [Concomitant]
  9. BENADRYL [Concomitant]
  10. GLUCOPHAGE [Concomitant]
  11. LASIX [Concomitant]
  12. NEURONTIN [Concomitant]
  13. WELLBUTRIN [Concomitant]

REACTIONS (1)
  - Myocardial infarction [Recovering/Resolving]
